FAERS Safety Report 24526877 (Version 1)
Quarter: 2024Q4

REPORT INFORMATION
  Report Type: Spontaneous
  Country: CN (occurrence: CN)
  Receive Date: 20241021
  Receipt Date: 20241021
  Transmission Date: 20250115
  Serious: No
  Sender: ROCHE
  Company Number: CN-ROCHE-3562578

PATIENT
  Age: 42 Year
  Sex: Female

DRUGS (19)
  1. VEMURAFENIB [Suspect]
     Active Substance: VEMURAFENIB
     Indication: Lung adenocarcinoma
     Route: 048
  2. VEMURAFENIB [Suspect]
     Active Substance: VEMURAFENIB
     Indication: Metastases to meninges
  3. COBIMETINIB [Suspect]
     Active Substance: COBIMETINIB
     Indication: Lung adenocarcinoma
     Dosage: FOR THE FIRST 21 DAYS OF EACH 28-DAY CYCLE
     Route: 048
  4. COBIMETINIB [Suspect]
     Active Substance: COBIMETINIB
     Indication: Metastases to meninges
  5. BEVACIZUMAB [Suspect]
     Active Substance: BEVACIZUMAB
     Indication: Lung adenocarcinoma
     Route: 042
  6. BEVACIZUMAB [Suspect]
     Active Substance: BEVACIZUMAB
     Indication: Metastases to meninges
     Route: 042
  7. PEMETREXED [Suspect]
     Active Substance: PEMETREXED
     Indication: Lung adenocarcinoma
     Dosage: ON DAY 1
     Route: 042
  8. PEMETREXED [Suspect]
     Active Substance: PEMETREXED
     Indication: Metastases to meninges
     Dosage: FOR THREE CYCLES
     Route: 042
  9. CISPLATIN [Suspect]
     Active Substance: CISPLATIN
     Indication: Lung adenocarcinoma
     Dosage: ON DAY 1
     Route: 042
  10. TEMOZOLOMIDE [Concomitant]
     Active Substance: TEMOZOLOMIDE
     Indication: Lung adenocarcinoma
     Route: 048
  11. TEMOZOLOMIDE [Concomitant]
     Active Substance: TEMOZOLOMIDE
     Indication: Metastases to meninges
  12. CABOZANTINIB [Concomitant]
     Active Substance: CABOZANTINIB
     Indication: Lung adenocarcinoma
     Route: 048
  13. CABOZANTINIB [Concomitant]
     Active Substance: CABOZANTINIB
     Indication: Metastases to meninges
     Route: 048
  14. PEMBROLIZUMAB [Concomitant]
     Active Substance: PEMBROLIZUMAB
     Indication: Lung adenocarcinoma
     Dosage: FOR 3 CYCLES
     Route: 042
  15. PEMBROLIZUMAB [Concomitant]
     Active Substance: PEMBROLIZUMAB
     Indication: Metastases to meninges
  16. DABRAFENIB [Concomitant]
     Active Substance: DABRAFENIB
     Indication: Lung adenocarcinoma
     Route: 048
  17. DABRAFENIB [Concomitant]
     Active Substance: DABRAFENIB
     Indication: Metastases to meninges
  18. TRAMETINIB [Concomitant]
     Active Substance: TRAMETINIB
     Indication: Lung adenocarcinoma
  19. TRAMETINIB [Concomitant]
     Active Substance: TRAMETINIB
     Indication: Metastases to meninges

REACTIONS (2)
  - Drug resistance [Unknown]
  - Disease progression [Unknown]
